FAERS Safety Report 20734051 (Version 1)
Quarter: 2022Q2

REPORT INFORMATION
  Report Type: Other
  Country: JP (occurrence: JP)
  Receive Date: 20220421
  Receipt Date: 20220421
  Transmission Date: 20220720
  Serious: Yes (Other)
  Sender: FDA-Public Use
  Company Number: JP-CHUGAI-2022013724

PATIENT
  Age: 73 Year
  Sex: Male
  Weight: 85.6 kg

DRUGS (10)
  1. ATEZOLIZUMAB [Suspect]
     Active Substance: ATEZOLIZUMAB
     Indication: Lung adenocarcinoma
     Dosage: 1200 MILLIGRAM
     Route: 041
     Dates: start: 20210729
  2. ATEZOLIZUMAB [Suspect]
     Active Substance: ATEZOLIZUMAB
     Dosage: 1200 MILLIGRAM, ONCE/3WEEKS
     Route: 041
     Dates: start: 20210909, end: 20210930
  3. ATEZOLIZUMAB [Suspect]
     Active Substance: ATEZOLIZUMAB
     Dosage: 1200 MILLIGRAM
     Route: 041
     Dates: end: 20211126
  4. BEVACIZUMAB [Suspect]
     Active Substance: BEVACIZUMAB
     Indication: Lung adenocarcinoma
     Dosage: 1280 MILLIGRAM
     Route: 041
     Dates: start: 20210729
  5. BEVACIZUMAB [Suspect]
     Active Substance: BEVACIZUMAB
     Dosage: 1280 MILLIGRAM, ONCE/3WEEKS
     Route: 041
     Dates: start: 20210909, end: 20210930
  6. BEVACIZUMAB [Suspect]
     Active Substance: BEVACIZUMAB
     Dosage: 1280 MILLIGRAM
     Route: 041
     Dates: end: 20211126
  7. CARBOPLATIN [Concomitant]
     Active Substance: CARBOPLATIN
     Indication: Lung adenocarcinoma
     Dosage: 620 MILLIGRAM
     Route: 041
     Dates: start: 20210729
  8. CARBOPLATIN [Concomitant]
     Active Substance: CARBOPLATIN
     Dosage: 500 MILLIGRAM, ONCE/3WEEKS
     Route: 041
     Dates: start: 20210909, end: 20210930
  9. PACLITAXEL [Concomitant]
     Active Substance: PACLITAXEL
     Indication: Lung adenocarcinoma
     Dosage: 400 MILLIGRAM
     Route: 041
     Dates: start: 20210729
  10. PACLITAXEL [Concomitant]
     Active Substance: PACLITAXEL
     Dosage: 320 MILLIGRAM, ONCE/3WEEKS
     Route: 041
     Dates: start: 20210909, end: 20210930

REACTIONS (1)
  - Neutrophil count decreased [Unknown]
